FAERS Safety Report 14375165 (Version 2)
Quarter: 2018Q1

REPORT INFORMATION
  Report Type: Spontaneous
  Country: DE (occurrence: DE)
  Receive Date: 20180111
  Receipt Date: 20180205
  Transmission Date: 20180509
  Serious: Yes (Hospitalization)
  Sender: FDA-Public Use
  Company Number: PHHY2018DE002451

PATIENT
  Age: 71 Year
  Sex: Female
  Weight: 73 kg

DRUGS (15)
  1. OXALIPLATIN. [Suspect]
     Active Substance: OXALIPLATIN
     Indication: COLON CANCER
     Dosage: 97.5 MG/M2, UNK (EQUAL TO 170 MG)
     Route: 042
     Dates: start: 20130923, end: 20131111
  2. AVASTIN [Suspect]
     Active Substance: BEVACIZUMAB
     Indication: COLON CANCER
     Dosage: 7.5 MG/KG, UNK
     Route: 042
     Dates: start: 20130923, end: 20131104
  3. AVASTIN [Suspect]
     Active Substance: BEVACIZUMAB
     Dosage: 550 MG, UNK
     Route: 042
  4. ONDANSETRON [Concomitant]
     Active Substance: ONDANSETRON
     Indication: PROPHYLAXIS
     Dosage: 8 MG, UNK
     Route: 042
     Dates: start: 20130923, end: 20131111
  5. LOPERAMID [Concomitant]
     Active Substance: LOPERAMIDE
     Indication: DIARRHOEA
     Dosage: 4 MG, UNK
     Route: 048
     Dates: start: 20130930, end: 20131110
  6. INNOHEP [Concomitant]
     Active Substance: TINZAPARIN SODIUM
     Indication: VARICOSE VEIN
     Route: 065
  7. XELODA [Suspect]
     Active Substance: CAPECITABINE
     Indication: COLORECTAL CANCER
  8. AVASTIN [Suspect]
     Active Substance: BEVACIZUMAB
     Indication: COLORECTAL CANCER METASTATIC
     Dosage: 547.5 MG, UNK
     Route: 042
  9. OMEP [Concomitant]
     Active Substance: OMEPRAZOLE
     Indication: NAUSEA
     Route: 065
  10. MCP [Concomitant]
     Active Substance: METOCLOPRAMIDE HYDROCHLORIDE
     Indication: NAUSEA
     Route: 065
  11. XELODA [Suspect]
     Active Substance: CAPECITABINE
     Indication: COLON CANCER
     Dosage: UNK
     Route: 048
  12. XELODA [Suspect]
     Active Substance: CAPECITABINE
     Indication: COLON CANCER
     Dosage: 2500 MG (ON DAYS 1 TO14 OF EACH CYCLE)
     Route: 048
     Dates: start: 20130923, end: 20131111
  13. DEXAMETHASON [Concomitant]
     Active Substance: DEXAMETHASONE
     Indication: PROPHYLAXIS
     Dosage: 8 MG, UNK
     Route: 042
     Dates: start: 20130923, end: 20131111
  14. CARVEDILOL. [Concomitant]
     Active Substance: CARVEDILOL
     Indication: HYPERTENSION
     Route: 065
  15. TILIDIN [Concomitant]
     Active Substance: NALOXONE HYDROCHLORIDE\TILIDINE HYDROCHLORIDE
     Indication: PAIN IN EXTREMITY
     Route: 065

REACTIONS (1)
  - Cerebral infarction [Recovered/Resolved with Sequelae]

NARRATIVE: CASE EVENT DATE: 20131111
